FAERS Safety Report 16466581 (Version 2)
Quarter: 2019Q2

REPORT INFORMATION
  Report Type: Report from Study
  Country: IN (occurrence: IN)
  Receive Date: 20190623
  Receipt Date: 20190623
  Transmission Date: 20190711
  Serious: Yes (Other)
  Sender: FDA-Public Use
  Company Number: PHHY2019IN142772

PATIENT
  Age: 56 Year
  Sex: Male

DRUGS (1)
  1. TRAVACOM (ALC) [Suspect]
     Active Substance: TIMOLOL MALEATE\TRAVOPROST
     Indication: GLAUCOMA
     Dosage: UNK UNK, QD (SUSPENSION)
     Route: 047
     Dates: start: 20190606

REACTIONS (1)
  - Cataract [Unknown]
